FAERS Safety Report 6102667-9 (Version None)
Quarter: 2009Q1

REPORT INFORMATION
  Report Type: 
  Country: None (occurrence: None)
  Receive Date: 20090304
  Receipt Date: 20081204
  Transmission Date: 20090719
  Serious: No
  Sender: FDA-Public Use
  Company Number: A0759079A

PATIENT
  Age: 56 Year
  Sex: Female

DRUGS (2)
  1. REQUIP [Suspect]
     Indication: PARKINSON'S DISEASE
     Route: 048
     Dates: start: 19970101
  2. CARBIDOPA AND LEVODOPA [Concomitant]

REACTIONS (3)
  - ABASIA [None]
  - DRUG INEFFECTIVE [None]
  - DYSKINESIA [None]
